FAERS Safety Report 21160952 (Version 1)
Quarter: 2022Q3

REPORT INFORMATION
  Report Type: Spontaneous
  Country: US (occurrence: None)
  Receive Date: 20220801
  Receipt Date: 20220801
  Transmission Date: 20221026
  Serious: Yes (Hospitalization)
  Sender: FDA-Public Use
  Company Number: None

PATIENT
  Age: 27 Year
  Sex: Male
  Weight: 120.33 kg

DRUGS (15)
  1. TEMOZOLOMIDE [Suspect]
     Active Substance: TEMOZOLOMIDE
     Indication: Breast cancer
     Dosage: FREQUENCY : DAILY;?
     Route: 048
  2. DESMOPRESSIN ACETATE [Concomitant]
     Active Substance: DESMOPRESSIN ACETATE
  3. SOLU-CORTEF [Concomitant]
     Active Substance: HYDROCORTISONE SODIUM SUCCINATE
  4. Goodsense ibuprofen [Concomitant]
  5. LEVOTHYROXINE [Concomitant]
     Active Substance: LEVOTHYROXINE
  6. VITAMINS [Concomitant]
     Active Substance: VITAMINS
  7. TESTOSTERONE [Concomitant]
     Active Substance: TESTOSTERONE
  8. DEXAMETHASONE [Concomitant]
     Active Substance: DEXAMETHASONE
  9. LEVETIRACETAM [Concomitant]
     Active Substance: LEVETIRACETAM
  10. ONDANSETRON [Concomitant]
     Active Substance: ONDANSETRON
  11. DIETARY SUPPLEMENT\HERBALS\INDIAN FRANKINCENSE [Concomitant]
     Active Substance: DIETARY SUPPLEMENT\HERBALS\INDIAN FRANKINCENSE
  12. WARFARIN [Concomitant]
     Active Substance: WARFARIN
  13. LORATADINE [Concomitant]
     Active Substance: LORATADINE
  14. FAMOTIDINE [Concomitant]
     Active Substance: FAMOTIDINE
  15. ACETAMINOPHEN [Concomitant]
     Active Substance: ACETAMINOPHEN

REACTIONS (5)
  - Asthenia [None]
  - Dizziness [None]
  - Hypoxia [None]
  - Hypotension [None]
  - Pulmonary embolism [None]
